FAERS Safety Report 12616741 (Version 2)
Quarter: 2016Q4

REPORT INFORMATION
  Report Type: Spontaneous
  Country: US (occurrence: US)
  Receive Date: 20160802
  Receipt Date: 20161219
  Transmission Date: 20170207
  Serious: Yes (Other)
  Sender: FDA-Public Use
  Company Number: US-CELGENEUS-USA-2016077368

PATIENT
  Sex: Female

DRUGS (1)
  1. REVLIMID [Suspect]
     Active Substance: LENALIDOMIDE
     Indication: PLASMA CELL MYELOMA
     Dosage: 25 MG
     Route: 048
     Dates: start: 20150212

REACTIONS (13)
  - Dysgeusia [Not Recovered/Not Resolved]
  - Loss of consciousness [Unknown]
  - Dry mouth [Unknown]
  - Ageusia [Not Recovered/Not Resolved]
  - Constipation [Unknown]
  - Oral pain [Unknown]
  - Back pain [Unknown]
  - Anosmia [Not Recovered/Not Resolved]
  - Vision blurred [Unknown]
  - Weight decreased [Unknown]
  - Tremor [Unknown]
  - Muscle spasms [Not Recovered/Not Resolved]
  - Joint swelling [Unknown]
